FAERS Safety Report 7580876-X (Version None)
Quarter: 2011Q2

REPORT INFORMATION
  Report Type: 
  Country: None (occurrence: None)
  Receive Date: 20110629
  Receipt Date: 20110628
  Transmission Date: 20111010
  Serious: Yes (Other)
  Sender: FDA-Public Use
  Company Number: US-PFIZER INC-2011144179

PATIENT
  Sex: Female
  Weight: 107.5 kg

DRUGS (6)
  1. DEXILANT [Concomitant]
     Indication: DYSPEPSIA
     Dosage: 60 MG, DAILY
     Route: 048
  2. CITALOPRAM [Concomitant]
     Indication: DEPRESSION
     Dosage: 20 MG, DAILY
     Route: 048
  3. CHANTIX [Suspect]
     Dosage: 1 MG, 2X/DAY
     Dates: start: 20110601
  4. PRAVASTATIN [Concomitant]
     Indication: BLOOD CHOLESTEROL INCREASED
     Dosage: 80 MG, DAILY
     Route: 048
  5. CHANTIX [Suspect]
     Indication: SMOKING CESSATION THERAPY
     Dosage: 0.5 MG, DAILY
     Route: 048
     Dates: start: 20110605, end: 20110601
  6. METFORMIN [Concomitant]
     Indication: BLOOD TRIGLYCERIDES INCREASED
     Dosage: 500 MG, DAILY
     Route: 048

REACTIONS (2)
  - PALPITATIONS [None]
  - PRESYNCOPE [None]
